FAERS Safety Report 13314685 (Version 3)
Quarter: 2017Q2

REPORT INFORMATION
  Report Type: Report from Study
  Country: US (occurrence: US)
  Receive Date: 20170309
  Receipt Date: 20170426
  Transmission Date: 20170830
  Serious: Yes (Hospitalization)
  Sender: FDA-Public Use
  Company Number: US-ACTELION-A-NJ2017-147910

PATIENT
  Age: 23 Year
  Sex: Female
  Weight: 107.3 kg

DRUGS (4)
  1. VELETRI [Suspect]
     Active Substance: EPOPROSTENOL
     Indication: PULMONARY ARTERIAL HYPERTENSION
     Dosage: 12 NG/KG, PER MIN
     Route: 042
     Dates: start: 20161223
  2. VELETRI [Suspect]
     Active Substance: EPOPROSTENOL
     Dosage: 16 NG/KG, PER MIN
     Route: 042
  3. OPSUMIT [Concomitant]
     Active Substance: MACITENTAN
     Indication: PULMONARY ARTERIAL HYPERTENSION
     Dosage: UNK
     Route: 048
  4. VELETRI [Suspect]
     Active Substance: EPOPROSTENOL
     Dosage: 11 NG/KG, PER MIN
     Route: 042

REACTIONS (15)
  - Hypokalaemia [Unknown]
  - Swelling [Unknown]
  - Headache [Unknown]
  - Fluid retention [Unknown]
  - Abdominal pain [Unknown]
  - Abdominal pain upper [Unknown]
  - Arthralgia [Unknown]
  - Back pain [Unknown]
  - Catheter site rash [Unknown]
  - Gallbladder disorder [Unknown]
  - Dyspnoea [Unknown]
  - Diarrhoea [Unknown]
  - Paracentesis [Unknown]
  - Nausea [Unknown]
  - Pain in jaw [Unknown]
